FAERS Safety Report 25733639 (Version 1)
Quarter: 2025Q3

REPORT INFORMATION
  Report Type: Spontaneous
  Country: EU (occurrence: EU)
  Receive Date: 20250828
  Receipt Date: 20250828
  Transmission Date: 20251021
  Serious: Yes (Hospitalization, Other)
  Sender: RECORDATI
  Company Number: EU-ORPHANEU-2025005979

PATIENT
  Age: 59 Year
  Sex: Male

DRUGS (1)
  1. ISTURISA [Suspect]
     Active Substance: OSILODROSTAT PHOSPHATE
     Indication: Product used for unknown indication
     Dates: end: 20250729

REACTIONS (4)
  - Cholestasis [Unknown]
  - Cholangitis [Unknown]
  - Silent myocardial infarction [Unknown]
  - Cortisol increased [Unknown]

NARRATIVE: CASE EVENT DATE: 20250727
